FAERS Safety Report 16701561 (Version 3)
Quarter: 2019Q4

REPORT INFORMATION
  Report Type: Spontaneous
  Country: NO (occurrence: NO)
  Receive Date: 20190814
  Receipt Date: 20191023
  Transmission Date: 20200122
  Serious: Yes (Other)
  Sender: FDA-Public Use
  Company Number: NO-PFIZER INC-2019342770

PATIENT
  Age: 2 Year
  Sex: Female
  Weight: 10 kg

DRUGS (2)
  1. GENOTROPIN GOQUICK [Suspect]
     Active Substance: SOMATROPIN
     Indication: GROWTH HORMONE DEFICIENCY
     Dosage: 0.35 MG, DAILY
     Dates: start: 20181018
  2. LEVAXIN [Concomitant]
     Active Substance: LEVOTHYROXINE SODIUM
     Indication: HYPOTHYROIDISM
     Dosage: 225 UG, WEEKLY
     Dates: start: 201809

REACTIONS (6)
  - Hypoglycaemia [Unknown]
  - Viral infection [Unknown]
  - Liquid product physical issue [Unknown]
  - Coma [Recovered/Resolved]
  - Product preparation issue [Unknown]
  - Product storage error [Unknown]

NARRATIVE: CASE EVENT DATE: 20181230
